FAERS Safety Report 18408813 (Version 1)
Quarter: 2020Q4

REPORT INFORMATION
  Report Type: Spontaneous
  Country: FR (occurrence: FR)
  Receive Date: 20201021
  Receipt Date: 20201021
  Transmission Date: 20210114
  Serious: Yes (Life-Threatening, Hospitalization)
  Sender: FDA-Public Use
  Company Number: FR-TEVA-2020-FR-1839700

PATIENT
  Age: 43 Year
  Sex: Male

DRUGS (2)
  1. TRAMADOL (CHLORHYDRATE DE) [Suspect]
     Active Substance: TRAMADOL HYDROCHLORIDE
     Route: 048
  2. METHADONE AP-HP [Suspect]
     Active Substance: METHADONE HYDROCHLORIDE
     Route: 048

REACTIONS (4)
  - Respiratory arrest [Recovered/Resolved]
  - Drug abuse [Recovered/Resolved]
  - Suicide attempt [Recovered/Resolved]
  - Coma [Recovered/Resolved]
